FAERS Safety Report 6575441-7 (Version None)
Quarter: 2010Q1

REPORT INFORMATION
  Report Type: 
  Country: None (occurrence: None)
  Receive Date: 20100208
  Receipt Date: 20100208
  Transmission Date: 20100710
  Serious: No
  Sender: FDA-Public Use
  Company Number: None

PATIENT
  Age: 51 Year
  Sex: Female
  Weight: 97.5234 kg

DRUGS (2)
  1. ROLAIDS [Suspect]
     Indication: DYSPEPSIA
     Dosage: 2 TAKEN 3TIMES DAILY 3 TIMES WEEKLY
     Dates: start: 20100127, end: 20100129
  2. MOTRIN IB [Suspect]
     Indication: SINUS HEADACHE
     Dosage: 1EVERY 4HOURS 3DAYS
     Dates: start: 20100125, end: 20100128

REACTIONS (3)
  - ABDOMINAL PAIN UPPER [None]
  - DIARRHOEA [None]
  - VOMITING PROJECTILE [None]
